FAERS Safety Report 11345516 (Version 3)
Quarter: 2015Q4

REPORT INFORMATION
  Report Type: Spontaneous
  Country: US (occurrence: US)
  Receive Date: 20150806
  Receipt Date: 20151103
  Transmission Date: 20160304
  Serious: No
  Sender: FDA-Public Use
  Company Number: US-PFIZER INC-2015240405

PATIENT
  Age: 59 Year
  Sex: Female

DRUGS (2)
  1. TIGECYCLINE. [Suspect]
     Active Substance: TIGECYCLINE
     Indication: INFECTION
     Dosage: 50 MG, 2X/DAY
     Route: 042
     Dates: start: 20150318, end: 20150428
  2. TIGECYCLINE. [Suspect]
     Active Substance: TIGECYCLINE
     Dosage: UNK
     Route: 042
     Dates: start: 201504, end: 20150501

REACTIONS (3)
  - Liver function test abnormal [Unknown]
  - Skin lesion [Recovering/Resolving]
  - Angiokeratoma [Recovered/Resolved]

NARRATIVE: CASE EVENT DATE: 20150503
